FAERS Safety Report 16033422 (Version 1)
Quarter: 2019Q2

REPORT INFORMATION
  Report Type: Spontaneous
  Country: US (occurrence: US)
  Receive Date: 20190304
  Receipt Date: 20190304
  Transmission Date: 20190711
  Serious: Yes (Other)
  Sender: FDA-Public Use
  Company Number: None

PATIENT
  Age: 45 Year
  Sex: Female
  Weight: 87.75 kg

DRUGS (1)
  1. OXCARBAZEPINE. [Suspect]
     Active Substance: OXCARBAZEPINE
     Indication: EPILEPSY
     Dosage: ?          QUANTITY:1.5 CAPSULE(S);?
     Route: 048

REACTIONS (5)
  - Suicidal ideation [None]
  - Osmotic demyelination syndrome [None]
  - Respiratory disorder [None]
  - Brain stem syndrome [None]
  - Cognitive disorder [None]

NARRATIVE: CASE EVENT DATE: 20130121
